FAERS Safety Report 9341123 (Version 1)
Quarter: 2013Q2

REPORT INFORMATION
  Report Type: Spontaneous
  Country: US (occurrence: US)
  Receive Date: 20130611
  Receipt Date: 20130611
  Transmission Date: 20140414
  Serious: No
  Sender: FDA-Public Use
  Company Number: US-009507513-1306USA002187

PATIENT
  Age: 37 Year
  Sex: Female

DRUGS (2)
  1. CLARITIN-D 24 HOUR [Suspect]
     Indication: HYPERSENSITIVITY
     Dosage: UNK, QD
     Route: 048
     Dates: start: 201305
  2. CLARITIN-D 24 HOUR [Suspect]
     Dosage: 10 MG, BID
     Route: 048
     Dates: start: 20130531

REACTIONS (1)
  - Accidental overdose [Not Recovered/Not Resolved]
